FAERS Safety Report 7306481-8 (Version None)
Quarter: 2011Q1

REPORT INFORMATION
  Report Type: 
  Country: None (occurrence: None)
  Receive Date: 20110119
  Receipt Date: 20101108
  Transmission Date: 20110831
  Serious: Yes (Other)
  Sender: FDA-Public Use
  Company Number: A-US2010-41520

PATIENT
  Age: 74 Year
  Sex: Female
  Weight: 74.8 kg

DRUGS (1)
  1. TRACLEER [Suspect]
     Indication: PULMONARY ARTERIAL HYPERTENSION
     Dosage: 62.5 MG, BID, ORAL
     Route: 048
     Dates: start: 20101013

REACTIONS (3)
  - PALPITATIONS [None]
  - FLUSHING [None]
  - OEDEMA PERIPHERAL [None]
